FAERS Safety Report 6088693-7 (Version None)
Quarter: 2009Q1

REPORT INFORMATION
  Report Type: 
  Country: None (occurrence: None)
  Receive Date: 20090219
  Receipt Date: 20090206
  Transmission Date: 20090719
  Serious: Yes (Hospitalization)
  Sender: FDA-Public Use
  Company Number: DSA_33224_2009

PATIENT
  Age: 87 Year
  Sex: Male

DRUGS (3)
  1. ENALAPRIL MALEATE [Suspect]
     Indication: CARDIAC FAILURE
     Dosage: (5 MG QD ORAL)
     Route: 048
     Dates: start: 20060901, end: 20090206
  2. ZANTAC [Concomitant]
  3. WARFARIN SODIUM [Concomitant]

REACTIONS (3)
  - INTERSTITIAL LUNG DISEASE [None]
  - NO THERAPEUTIC RESPONSE [None]
  - WHITE BLOOD CELL COUNT DECREASED [None]
